FAERS Safety Report 26106276 (Version 1)
Quarter: 2025Q4

REPORT INFORMATION
  Report Type: Spontaneous
  Country: US (occurrence: None)
  Receive Date: 20251201
  Receipt Date: 20251201
  Transmission Date: 20260118
  Serious: Yes (Death, Life-Threatening, Hospitalization, Other)
  Sender: ORGANON
  Company Number: US-MLMSERVICE-20251117-PI717381-00040-1

PATIENT
  Age: 84 Year
  Sex: Female

DRUGS (1)
  1. ALENDRONATE [Suspect]
     Active Substance: ALENDRONATE SODIUM
     Dosage: APPROXIMATELY 420 MG OF ORAL ALENDRONATE

REACTIONS (9)
  - Intestinal pseudo-obstruction [Fatal]
  - Escherichia bacteraemia [Fatal]
  - Acute kidney injury [Fatal]
  - Intestinal ischaemia [Fatal]
  - Sepsis [Fatal]
  - Intestinal dilatation [Fatal]
  - Hypermagnesaemia [Fatal]
  - Reaction to excipient [Fatal]
  - Accidental overdose [Fatal]
